FAERS Safety Report 20580157 (Version 2)
Quarter: 2022Q2

REPORT INFORMATION
  Report Type: Spontaneous
  Country: CA (occurrence: None)
  Receive Date: 20220310
  Receipt Date: 20220404
  Transmission Date: 20220721
  Serious: Yes (Other)
  Sender: FDA-Public Use
  Company Number: CA-PFIZER INC-202200237072

PATIENT
  Age: 49 Year
  Sex: Female

DRUGS (12)
  1. METHOTREXATE [Suspect]
     Active Substance: METHOTREXATE
     Indication: Rheumatoid arthritis
     Route: 065
     Dates: start: 20210211
  2. METHOTREXATE [Suspect]
     Active Substance: METHOTREXATE
     Route: 048
     Dates: start: 20210211
  3. ERELZI [Concomitant]
     Active Substance: ETANERCEPT-SZZS
     Route: 065
     Dates: start: 20210901
  4. ERELZI [Concomitant]
     Active Substance: ETANERCEPT-SZZS
     Route: 058
     Dates: start: 20210901, end: 202203
  5. FOLIC ACID [Concomitant]
     Active Substance: FOLIC ACID
     Route: 065
     Dates: start: 20210204
  6. FOLIC ACID [Concomitant]
     Active Substance: FOLIC ACID
     Route: 048
     Dates: start: 20210204
  7. HYDROXYCHLOROQUINE [Concomitant]
     Active Substance: HYDROXYCHLOROQUINE
     Route: 065
     Dates: start: 20210204, end: 20210720
  8. NAPROXEN [Concomitant]
     Active Substance: NAPROXEN
     Dosage: UNKNOWN, AS NEEDED
     Route: 065
     Dates: start: 20210121
  9. TURMERIC XTRA [Concomitant]
     Route: 065
  10. CANNABIDIOL\HERBALS [Concomitant]
     Active Substance: CANNABIDIOL\HERBALS
     Route: 065
  11. VIMOVO [Concomitant]
     Active Substance: ESOMEPRAZOLE MAGNESIUM\NAPROXEN
     Route: 065
  12. XELJANZ XR [Concomitant]
     Active Substance: TOFACITINIB CITRATE
     Indication: Rheumatoid arthritis
     Dosage: NOT YET STARTED
     Route: 048

REACTIONS (5)
  - Rheumatoid arthritis [Unknown]
  - White blood cell count decreased [Unknown]
  - Musculoskeletal chest pain [Unknown]
  - Painful respiration [Unknown]
  - Serositis [Unknown]

NARRATIVE: CASE EVENT DATE: 20210101
